FAERS Safety Report 7658765-1 (Version None)
Quarter: 2011Q3

REPORT INFORMATION
  Report Type: 
  Country: None (occurrence: None)
  Receive Date: 20110802
  Receipt Date: 20110722
  Transmission Date: 20111222
  Serious: Yes (Hospitalization, Other)
  Sender: FDA-Public Use
  Company Number: JPI-P-013040

PATIENT
  Age: 49 Year
  Sex: Female
  Weight: 58.9676 kg

DRUGS (7)
  1. OXYCODONE WITH ASPIRIN [Concomitant]
  2. ALPRAZOLAM [Concomitant]
  3. OXYCODONE HYDROCHLORIDE [Concomitant]
  4. CARISOPRODOL [Concomitant]
  5. XYREM [Suspect]
     Indication: INSOMNIA
     Dosage: 6 GIN (3 GM, 2 IN 1 D),ORAL,  (TITRATING DOSE),ORAL, 9 GM (4.5 GM,2 IN 1 D),ORAL
     Route: 048
     Dates: start: 20070730
  6. XYREM [Suspect]
     Indication: INSOMNIA
     Dosage: 6 GIN (3 GM, 2 IN 1 D),ORAL,  (TITRATING DOSE),ORAL, 9 GM (4.5 GM,2 IN 1 D),ORAL
     Route: 048
     Dates: start: 20110101
  7. XYREM [Suspect]
     Indication: INSOMNIA
     Dosage: 6 GIN (3 GM, 2 IN 1 D),ORAL,  (TITRATING DOSE),ORAL, 9 GM (4.5 GM,2 IN 1 D),ORAL
     Route: 048
     Dates: start: 20080111, end: 20110416

REACTIONS (12)
  - CONSTIPATION [None]
  - DECREASED APPETITE [None]
  - FALL [None]
  - HYPERHIDROSIS [None]
  - FEELING COLD [None]
  - HIP FRACTURE [None]
  - MUSCULOSKELETAL STIFFNESS [None]
  - DISORIENTATION [None]
  - WEIGHT DECREASED [None]
  - MUSCLE INJURY [None]
  - BACK PAIN [None]
  - JOINT DISLOCATION [None]
